FAERS Safety Report 8004943-1 (Version None)
Quarter: 2011Q4

REPORT INFORMATION
  Report Type: 
  Country: None (occurrence: None)
  Receive Date: 20111219
  Receipt Date: 20111206
  Transmission Date: 20120403
  Serious: Yes (Hospitalization)
  Sender: FDA-Public Use
  Company Number: DSA_48373_2011

PATIENT
  Age: 84 Year
  Sex: Female

DRUGS (5)
  1. PLAVIX [Concomitant]
  2. VASTAREL [Concomitant]
  3. DILTIAZEM HYDROCHLORIDE [Suspect]
     Indication: ARRHYTHMIA
     Dosage: 180 MG, DAILY, ORAL
     Route: 048
     Dates: start: 20110526, end: 20110609
  4. CORVASAL [Concomitant]
  5. OLMESARTAN MEDOXOMIL [Concomitant]

REACTIONS (6)
  - LYMPHADENOPATHY [None]
  - EOSINOPHILIA [None]
  - INSOMNIA [None]
  - EPIDERMAL NECROSIS [None]
  - TOXIC SKIN ERUPTION [None]
  - RASH MACULO-PAPULAR [None]
